FAERS Safety Report 8844089 (Version 1)
Quarter: 2012Q4

REPORT INFORMATION
  Report Type: 
  Country: US (occurrence: US)
  Receive Date: 20121016
  Receipt Date: 20121016
  Transmission Date: 20130627
  Serious: No
  Sender: FDA-Public Use
  Company Number: US-BAYER-2012-107930

PATIENT
  Age: 77 Year
  Sex: Female
  Weight: 66 kg

DRUGS (5)
  1. ALEVE CAPLET/TABLET,MIDOL EXTENDED RELIEF CAPLET [Suspect]
     Indication: BACK PAIN
     Dosage: UNK UNK, PRN
     Route: 048
     Dates: start: 2002
  2. PREDNISONE [Concomitant]
  3. METOPROLOL [Concomitant]
  4. SULFASALAZINE [Concomitant]
  5. VICODIN [Concomitant]

REACTIONS (1)
  - Dyspepsia [None]
